FAERS Safety Report 7643915-3 (Version None)
Quarter: 2011Q3

REPORT INFORMATION
  Report Type: 
  Country: None (occurrence: None)
  Receive Date: 20110729
  Receipt Date: 20110511
  Transmission Date: 20111222
  Serious: No
  Sender: FDA-Public Use
  Company Number: US-GLAXOSMITHKLINE-A0927733A

PATIENT
  Sex: Female

DRUGS (6)
  1. IMITREX [Suspect]
     Route: 048
  2. ZOMIG [Suspect]
     Route: 065
     Dates: start: 20110423
  3. LAMICTAL [Concomitant]
  4. TOPAMAX [Concomitant]
  5. PROZAC [Concomitant]
  6. CONCURRENT MEDICATIONS [Concomitant]

REACTIONS (9)
  - HYPERSENSITIVITY [None]
  - OEDEMA PERIPHERAL [None]
  - LIP SWELLING [None]
  - DYSPNOEA [None]
  - ABASIA [None]
  - BEDRIDDEN [None]
  - HYPERAESTHESIA [None]
  - FEELING HOT [None]
  - TENDERNESS [None]
